FAERS Safety Report 5010509-8 (Version None)
Quarter: 2006Q2

REPORT INFORMATION
  Report Type: 
  Country: None (occurrence: None)
  Receive Date: 20060525
  Receipt Date: 20050915
  Transmission Date: 20061013
  Serious: No
  Sender: FDA-Public Use
  Company Number: US-GLAXOSMITHKLINE-A0574412A

PATIENT
  Age: 57 Year
  Sex: Female

DRUGS (6)
  1. BACTROBAN [Suspect]
     Indication: IMPETIGO
     Route: 061
     Dates: start: 20050914, end: 20050914
  2. NORTRIPTYLINE HCL [Concomitant]
  3. MAXALT [Concomitant]
  4. ZONEGRAN [Concomitant]
  5. NADOLOL [Concomitant]
  6. BACTROBAN [Concomitant]
     Indication: DRUG USE FOR UNKNOWN INDICATION
     Route: 045

REACTIONS (1)
  - RHINALGIA [None]
